FAERS Safety Report 20327009 (Version 1)
Quarter: 2022Q1

REPORT INFORMATION
  Report Type: Spontaneous
  Country: US (occurrence: None)
  Receive Date: 20220111
  Receipt Date: 20220111
  Transmission Date: 20220423
  Serious: Yes (Hospitalization)
  Sender: FDA-Public Use
  Company Number: None

PATIENT
  Age: 49 Year
  Sex: Female

DRUGS (2)
  1. BOTOX [Suspect]
     Active Substance: ONABOTULINUMTOXINA
     Indication: Hyperhidrosis
     Dosage: OTHER QUANTITY : 100 UNIT;?FREQUENCY : AS DIRECTED;?OTHER ROUTE : INJECTION ;  INJECT 50 UNITS INTO
     Route: 050
     Dates: start: 20171128
  2. BOTOX [Suspect]
     Active Substance: ONABOTULINUMTOXINA
     Dosage: OTHER QUANTITY : 50 UNITS;?FREQUENCY : AS DIRECTED;?OTHER ROUTE : INJECTION;?
     Route: 050

REACTIONS (2)
  - Upper respiratory tract infection [None]
  - Nasopharyngitis [None]

NARRATIVE: CASE EVENT DATE: 20220105
